FAERS Safety Report 19501023 (Version 1)
Quarter: 2021Q3

REPORT INFORMATION
  Report Type: Spontaneous
  Country: US (occurrence: US)
  Receive Date: 20210706
  Receipt Date: 20210706
  Transmission Date: 20211014
  Serious: Yes (Disabling)
  Sender: FDA-Public Use
  Company Number: None

PATIENT
  Age: 40 Year
  Sex: Female
  Weight: 76.5 kg

DRUGS (3)
  1. VITAMIN B [Concomitant]
     Active Substance: VITAMIN B
  2. DROSPIRENONE/ETHINYL ESTRADIOL/LEVOMEFOLATE (GENERIC BEYAZ) [Suspect]
     Active Substance: DROSPIRENONE\ETHINYL ESTRADIOL\LEVOMEFOLATE CALCIUM
     Indication: CONTRACEPTION
     Dosage: ?          QUANTITY:28 TABLET(S);?
     Route: 048
     Dates: start: 20170516, end: 20210331
  3. BEYAZ ONLY [Concomitant]

REACTIONS (5)
  - Dysmenorrhoea [None]
  - Fatigue [None]
  - Heavy menstrual bleeding [None]
  - Suspected product quality issue [None]
  - Intermenstrual bleeding [None]

NARRATIVE: CASE EVENT DATE: 20210222
